FAERS Safety Report 4831713-5 (Version None)
Quarter: 2005Q4

REPORT INFORMATION
  Report Type: 
  Country: None (occurrence: None)
  Receive Date: 20051116
  Receipt Date: 20051107
  Transmission Date: 20060501
  Serious: Yes (Other)
  Sender: FDA-Public Use
  Company Number: 2005153802

PATIENT
  Age: 35 Year
  Sex: Male
  Weight: 113.3993 kg

DRUGS (4)
  1. NORVASC [Suspect]
     Indication: HYPERTENSION
  2. ACCUPRIL [Suspect]
     Indication: HYPERTENSION
  3. PROZAC [Concomitant]
  4. KLONOPIN [Concomitant]

REACTIONS (4)
  - FALL [None]
  - FRACTURE [None]
  - INJURY [None]
  - LIGAMENT INJURY [None]
